FAERS Safety Report 7222176-3 (Version None)
Quarter: 2011Q1

REPORT INFORMATION
  Report Type: 
  Country: None (occurrence: None)
  Receive Date: 20110103
  Receipt Date: 20101217
  Transmission Date: 20110831
  Serious: Yes (Hospitalization)
  Sender: FDA-Public Use
  Company Number: VAL_00475_2010

PATIENT
  Sex: Female

DRUGS (9)
  1. CALCIUM LACTATE (CALCIUM LACTATE) [Suspect]
     Indication: HYPOPARATHYROIDISM SECONDARY
     Dosage: (1 G QD ORAL)
     Route: 048
     Dates: start: 19840301, end: 20091124
  2. GLYCYRRHIZA GLABRA (GLYCYRRHIZA GLABRA) [Suspect]
     Indication: GASTRITIS
     Dosage: 1.3 G TID ORAL)
     Route: 048
     Dates: start: 20091118, end: 20091124
  3. VITAMIN D [Concomitant]
  4. THYRADIN S [Concomitant]
  5. ROCALTROL [Suspect]
     Indication: HYPOPARATHYROIDISM SECONDARY
     Dosage: (1.5 ?G QD ORAL), (1 ?G QD)
     Route: 048
     Dates: start: 19840301, end: 20091124
  6. ROCALTROL [Suspect]
     Indication: HYPOPARATHYROIDISM SECONDARY
     Dosage: (1.5 ?G QD ORAL), (1 ?G QD)
     Route: 048
     Dates: start: 20091201, end: 20091203
  7. ROCALTROL [Suspect]
     Indication: HYPOPARATHYROIDISM SECONDARY
     Dosage: (1.5 ?G QD ORAL), (1 ?G QD)
     Route: 048
     Dates: start: 20101203
  8. H2-RECEPTOR ANTAGONISTS [Concomitant]
  9. TSUKUSHI AM [Concomitant]

REACTIONS (10)
  - DEHYDRATION [None]
  - RENAL FAILURE [None]
  - DRY MOUTH [None]
  - HYPERCALCAEMIA [None]
  - DEPRESSED LEVEL OF CONSCIOUSNESS [None]
  - FLUID INTAKE REDUCED [None]
  - HYPOPHAGIA [None]
  - DECREASED APPETITE [None]
  - GASTRITIS [None]
  - TRANSIENT ISCHAEMIC ATTACK [None]
